FAERS Safety Report 13501711 (Version 1)
Quarter: 2017Q2

REPORT INFORMATION
  Report Type: Report from Study
  Country: CN (occurrence: CN)
  Receive Date: 20170502
  Receipt Date: 20170502
  Transmission Date: 20170830
  Serious: Yes (Hospitalization, Other)
  Sender: FDA-Public Use
  Company Number: CN-HETERO LABS LTD-2020079

PATIENT
  Age: 85 Year
  Sex: Male

DRUGS (3)
  1. ESTAZOLAM. [Suspect]
     Active Substance: ESTAZOLAM
     Route: 065
  2. DULOXETINE. [Suspect]
     Active Substance: DULOXETINE
     Indication: MAJOR DEPRESSION
     Route: 065
  3. BUPROPION. [Suspect]
     Active Substance: BUPROPION
     Route: 065

REACTIONS (2)
  - Drug interaction [Recovered/Resolved]
  - Delirium [Recovered/Resolved]
